FAERS Safety Report 7525506-8 (Version None)
Quarter: 2011Q2

REPORT INFORMATION
  Report Type: 
  Country: None (occurrence: None)
  Receive Date: 20110606
  Receipt Date: 20101227
  Transmission Date: 20111010
  Serious: Yes (Hospitalization, Other)
  Sender: FDA-Public Use
  Company Number: US-BAYER-201024166NA

PATIENT
  Age: 37 Year
  Sex: Female
  Weight: 158.73 kg

DRUGS (8)
  1. YASMIN [Suspect]
     Indication: PREMENSTRUAL SYNDROME
  2. PHENERGAN HCL [Concomitant]
  3. SKELAXIN [Concomitant]
  4. YASMIN [Suspect]
     Indication: CONTRACEPTION
     Dosage: UNK UNK, QD
     Route: 048
     Dates: start: 20061001, end: 20080201
  5. METFORMIN HCL [Concomitant]
  6. SYNTHROID [Concomitant]
  7. CALCIUM [CALCIUM CARBONATE] [Concomitant]
  8. XANAX [Concomitant]

REACTIONS (11)
  - ABDOMINAL DISTENSION [None]
  - CHOLECYSTECTOMY [None]
  - DYSPEPSIA [None]
  - DIARRHOEA [None]
  - DEPRESSION [None]
  - FLATULENCE [None]
  - SCAR [None]
  - ANXIETY [None]
  - BILIARY COLIC [None]
  - CHOLELITHIASIS [None]
  - CONSTIPATION [None]
